FAERS Safety Report 9363937 (Version 1)
Quarter: 2013Q2

REPORT INFORMATION
  Report Type: Spontaneous
  Country: CA (occurrence: None)
  Receive Date: 20130618
  Receipt Date: 20130618
  Transmission Date: 20140414
  Serious: Yes (Hospitalization)
  Sender: FDA-Public Use
  Company Number: 2013AP005943

PATIENT
  Sex: Male

DRUGS (1)
  1. APO-CLOZAPINE [Suspect]

REACTIONS (2)
  - Overdose [None]
  - Schizophrenia [None]
